FAERS Safety Report 11635816 (Version 6)
Quarter: 2016Q1

REPORT INFORMATION
  Report Type: Spontaneous
  Country: US (occurrence: US)
  Receive Date: 20151016
  Receipt Date: 20160330
  Transmission Date: 20160525
  Serious: Yes (Hospitalization, Other)
  Sender: FDA-Public Use
  Company Number: US-AMGEN-USASP2015101384

PATIENT
  Age: 60 Year
  Sex: Male
  Weight: 92.97 kg

DRUGS (31)
  1. CLINDAMYCIN PHOSPHATE AND BENZOYL PEROXIDE [Concomitant]
     Active Substance: BENZOYL PEROXIDE\CLINDAMYCIN PHOSPHATE
     Dosage: 1-5 % GEL APPLY EVERY DAY TO AFFECTED AREA.
  2. NEFAZODONE [Concomitant]
     Active Substance: NEFAZODONE
     Dosage: 100 MG, TID 1/2 TAB
     Route: 048
  3. XANAX [Concomitant]
     Active Substance: ALPRAZOLAM
     Indication: AFFECTIVE DISORDER
     Dosage: 4 MG, QD
     Route: 048
  4. AMBROSIA ARTEMISIIFOLIA [Concomitant]
     Dosage: UNK
     Dates: start: 201310
  5. TAMSULOSIN [Concomitant]
     Active Substance: TAMSULOSIN
     Dosage: 0.4 MG, QD
     Route: 048
  6. PREDNISONE. [Concomitant]
     Active Substance: PREDNISONE
     Dosage: 60 MG, QD
     Dates: start: 2002
  7. DEXILANT [Concomitant]
     Active Substance: DEXLANSOPRAZOLE
     Dosage: 60 MG, QD
  8. BENADRYL [Concomitant]
     Active Substance: DIPHENHYDRAMINE HYDROCHLORIDE
     Dosage: UNK
  9. NPLATE [Suspect]
     Active Substance: ROMIPLOSTIM
     Indication: IMMUNE THROMBOCYTOPENIC PURPURA
     Dosage: 500 MUG, QWK
     Route: 058
     Dates: start: 20141001, end: 201501
  10. KLOR-CON [Concomitant]
     Active Substance: POTASSIUM CHLORIDE
     Dosage: 20 MEQ, QD
     Route: 048
  11. SINGULAIR [Concomitant]
     Active Substance: MONTELUKAST SODIUM
     Dosage: 10 MG, QD
     Route: 048
  12. ALBUTEROL SULFATE. [Concomitant]
     Active Substance: ALBUTEROL SULFATE
     Indication: PULMONARY CONGESTION
  13. PROAIR HFA [Concomitant]
     Active Substance: ALBUTEROL SULFATE
     Dosage: 2PUFFS
  14. TRETINOIN. [Concomitant]
     Active Substance: TRETINOIN
     Indication: ACNE
     Dosage: 0.02 %, AS NECESSARY
  15. CEPHALEXIN                         /00145501/ [Concomitant]
     Active Substance: CEPHALEXIN
     Indication: UPPER RESPIRATORY TRACT INFECTION
     Dosage: 500 MG,FOUR TIMES A ADAY FOR 10 DAY
     Route: 048
  16. ALBUTEROL SULFATE. [Concomitant]
     Active Substance: ALBUTEROL SULFATE
     Indication: DYSPNOEA
     Dosage: 2.5 MG/3 ML FOR EVERY 4 TO 6 HOUR
     Dates: start: 1988
  17. ALBUTEROL SULFATE. [Concomitant]
     Active Substance: ALBUTEROL SULFATE
     Indication: COUGH
  18. ALBUTEROL SULFATE. [Concomitant]
     Active Substance: ALBUTEROL SULFATE
     Indication: CHEST DISCOMFORT
  19. ALBUTEROL SULFATE. [Concomitant]
     Active Substance: ALBUTEROL SULFATE
     Indication: BRONCHOSPASM
  20. FLUOCINONIDE. [Concomitant]
     Active Substance: FLUOCINONIDE
     Indication: PSORIASIS
     Dosage: 0.05%, TWICE A DAY  UPTO 3 WEEK
  21. FLUTICASONE PROPIONATE. [Concomitant]
     Active Substance: FLUTICASONE PROPIONATE
     Dosage: 50 MCG/ ACT SUSP
  22. ENOXAPARIN                         /01708202/ [Concomitant]
     Active Substance: ENOXAPARIN SODIUM
     Dosage: 60 MG, Q12H
     Route: 058
  23. CLONAZEPAM. [Concomitant]
     Active Substance: CLONAZEPAM
     Dosage: 2 MG, TID
     Route: 048
  24. GABAPENTIN. [Concomitant]
     Active Substance: GABAPENTIN
     Dosage: 300 MG, TID ONE TABLET
     Route: 048
  25. IMMUNOGLOBULIN I.V [Concomitant]
     Active Substance: HUMAN IMMUNOGLOBULIN G
     Dosage: UNK
     Dates: start: 200304
  26. DUAC [Concomitant]
     Active Substance: BENZOYL PEROXIDE\CLINDAMYCIN PHOSPHATE
     Indication: ACNE
  27. BABY ASPIRIN [Concomitant]
     Active Substance: ASPIRIN
     Dosage: UNK
     Dates: start: 201410, end: 201501
  28. PRILOSEC [Concomitant]
     Active Substance: OMEPRAZOLE MAGNESIUM
     Indication: CHEST PAIN
     Dosage: 20 MG, AS NECESSARY
  29. SERZONE [Concomitant]
     Active Substance: NEFAZODONE HYDROCHLORIDE
     Dosage: 50 MG, QID
     Route: 048
  30. NEXIUM [Concomitant]
     Active Substance: ESOMEPRAZOLE MAGNESIUM
     Indication: GASTROOESOPHAGEAL REFLUX DISEASE
     Dosage: 20 MG, QD
  31. TYLENOL [Concomitant]
     Active Substance: ACETAMINOPHEN
     Dosage: UNK

REACTIONS (28)
  - Haematochezia [Recovered/Resolved]
  - Peripheral swelling [Recovered/Resolved]
  - Deep vein thrombosis [Recovered/Resolved]
  - Ear disorder [Unknown]
  - Blood disorder [Unknown]
  - Pruritus [Recovered/Resolved]
  - Mechanical urticaria [Recovered/Resolved]
  - Injection site bruising [Recovered/Resolved]
  - Thrombocytopenia [Unknown]
  - Panic disorder [Unknown]
  - Thrombophlebitis superficial [Unknown]
  - Irritability [Unknown]
  - Abdominal pain [Unknown]
  - Phlebitis deep [Unknown]
  - Anxiety [Unknown]
  - Rash pruritic [Recovered/Resolved]
  - Acne [Unknown]
  - Platelet count decreased [Unknown]
  - Peripheral arterial occlusive disease [Unknown]
  - Urticaria [Recovered/Resolved]
  - Weight increased [Unknown]
  - Ecchymosis [Unknown]
  - Pain in extremity [Unknown]
  - Gastrointestinal disorder [Unknown]
  - Adverse drug reaction [Unknown]
  - Nasal congestion [Unknown]
  - Dyspepsia [Unknown]
  - Epigastric discomfort [Recovered/Resolved]

NARRATIVE: CASE EVENT DATE: 2014
